FAERS Safety Report 4727557-5 (Version None)
Quarter: 2005Q3

REPORT INFORMATION
  Report Type: 
  Country: None (occurrence: None)
  Receive Date: 20050727
  Receipt Date: 20050727
  Transmission Date: 20060218
  Serious: Yes (Life-Threatening, Hospitalization)
  Sender: FDA-Public Use
  Company Number: None

PATIENT
  Age: 28 Year
  Sex: Female
  Weight: 55 kg

DRUGS (2)
  1. ALTEPLASE [Suspect]
     Indication: HAEMORRHAGE
     Dosage: 100 MG ONCE PR
     Dates: start: 20050508
  2. WARFARIN [Suspect]
     Indication: HAEMORRHAGE
     Dosage: PO
     Route: 048

REACTIONS (4)
  - ABDOMINAL PAIN [None]
  - CONTUSION [None]
  - HAEMORRHAGE [None]
  - SCREAMING [None]
